FAERS Safety Report 15979802 (Version 1)
Quarter: 2019Q1

REPORT INFORMATION
  Report Type: Spontaneous
  Country: US (occurrence: US)
  Receive Date: 20190218
  Receipt Date: 20190218
  Transmission Date: 20190418
  Serious: No
  Sender: FDA-Public Use
  Company Number: None

PATIENT
  Age: 66 Year
  Sex: Female
  Weight: 112.5 kg

DRUGS (9)
  1. BUPROPION. [Concomitant]
     Active Substance: BUPROPION
  2. GENERIC TYLENOL PM EXTRA STRENGTH [Concomitant]
  3. VENAFLAXINE [Concomitant]
  4. DICLOXACILLIN [Concomitant]
     Active Substance: DICLOXACILLIN
  5. FIRDAPSE [Suspect]
     Active Substance: AMIFAMPRIDINE
     Indication: MYASTHENIC SYNDROME
     Dosage: ?          QUANTITY:2 TABLET(S);?
     Route: 048
     Dates: start: 20190213
  6. HCTZ [Concomitant]
     Active Substance: HYDROCHLOROTHIAZIDE
  7. DILTIAZEM. [Concomitant]
     Active Substance: DILTIAZEM
  8. 1 A DAY WOMEN VITAMIN [Concomitant]
  9. POTASSIUM [Concomitant]
     Active Substance: POTASSIUM

REACTIONS (3)
  - Drug effect incomplete [None]
  - Blood glucose increased [None]
  - Headache [None]

NARRATIVE: CASE EVENT DATE: 20190213
